FAERS Safety Report 20126144 (Version 1)
Quarter: 2021Q4

REPORT INFORMATION
  Report Type: Spontaneous
  Country: DE (occurrence: DE)
  Receive Date: 20211129
  Receipt Date: 20211129
  Transmission Date: 20220303
  Serious: Yes (Hospitalization, Congenital Anomaly, Other)
  Sender: FDA-Public Use
  Company Number: DE-EMBRYOTOX-202105029

PATIENT
  Age: 1 Day
  Sex: Female
  Weight: 3.06 kg

DRUGS (2)
  1. LAMOTRIGINE [Suspect]
     Active Substance: LAMOTRIGINE
     Indication: Epilepsy
     Dosage: 500 [MG/D (BIS 400) ]/ INITIAL 400MG DAILY, DOSAGE INCREASED TO 500MG DAILY FROM WEEK 16
     Route: 064
     Dates: start: 20200618, end: 20210317
  2. INFLUSPLIT TETRA [Concomitant]
     Active Substance: INFLUENZA VIRUS VACCINE
     Indication: Immunisation
     Dosage: UNK
     Route: 064
     Dates: start: 20201008, end: 20201008

REACTIONS (8)
  - Congenital skin dimples [Not Recovered/Not Resolved]
  - Abnormal palmar/plantar creases [Not Recovered/Not Resolved]
  - Dysmorphism [Not Recovered/Not Resolved]
  - Accessory auricle [Not Recovered/Not Resolved]
  - External auditory canal atresia [Not Recovered/Not Resolved]
  - Patent ductus arteriosus [Not Recovered/Not Resolved]
  - Fallot^s tetralogy [Recovered/Resolved with Sequelae]
  - Foetal exposure during pregnancy [Unknown]

NARRATIVE: CASE EVENT DATE: 20210317
